FAERS Safety Report 8219924-2 (Version None)
Quarter: 2012Q1

REPORT INFORMATION
  Report Type: 
  Country: None (occurrence: None)
  Receive Date: 20120319
  Receipt Date: 20120308
  Transmission Date: 20120608
  Serious: Yes (Death)
  Sender: FDA-Public Use
  Company Number: IL-ASTRAZENECA-2012SE17490

PATIENT
  Age: 30 Year
  Sex: Female

DRUGS (7)
  1. FOSCARNET [Suspect]
     Indication: CYTOMEGALOVIRUS INFECTION
     Route: 042
  2. STEROID NOS [Concomitant]
  3. FLUDARABINE PHOSPHATE [Concomitant]
  4. THIOTEPA [Concomitant]
  5. ANTI-THYMOCYTE GLOBULIN NOS [Concomitant]
  6. IMMUNE GLOBULIN NOS [Suspect]
     Indication: CYTOMEGALOVIRUS INFECTION
     Route: 065
  7. GANCICLOVIR [Suspect]
     Indication: CYTOMEGALOVIRUS INFECTION
     Route: 065

REACTIONS (1)
  - CYTOMEGALOVIRUS INFECTION [None]
